FAERS Safety Report 6459965-9 (Version None)
Quarter: 2009Q4

REPORT INFORMATION
  Report Type: 
  Country: None (occurrence: None)
  Receive Date: 20091129
  Receipt Date: 20091117
  Transmission Date: 20100525
  Serious: Yes (Other)
  Sender: FDA-Public Use
  Company Number: PHEH2009US16251

PATIENT
  Age: 49 Year
  Sex: Female

DRUGS (4)
  1. TEKTURNA [Suspect]
     Indication: HYPERTENSION
     Dosage: 300 MG, QD
  2. DYAZIDE [Concomitant]
     Dosage: UNK, UNK
  3. ATENOLOL [Concomitant]
     Dosage: UNK, UNK
  4. CLONIDINE [Concomitant]
     Dosage: UNK, UNK

REACTIONS (3)
  - DYSPNOEA [None]
  - FACE OEDEMA [None]
  - RASH [None]
